FAERS Safety Report 6197214-X (Version None)
Quarter: 2009Q2

REPORT INFORMATION
  Report Type: 
  Country: None (occurrence: None)
  Receive Date: 20090521
  Receipt Date: 20080102
  Transmission Date: 20091009
  Serious: Yes (Hospitalization, Other)
  Sender: FDA-Public Use
  Company Number: US-ASTRAZENECA-2007UW14863

PATIENT
  Age: 14892 Day
  Sex: Female

DRUGS (17)
  1. SEROQUEL [Suspect]
     Indication: SCHIZOPHRENIA
     Dosage: 200-800MG
     Route: 048
     Dates: start: 20020801, end: 20060101
  2. SEROQUEL [Suspect]
     Indication: SLEEP DISORDER
     Dosage: 200-800MG
     Route: 048
     Dates: start: 20020801, end: 20060101
  3. SEROQUEL [Suspect]
     Indication: PSYCHOTIC DISORDER
     Dosage: 200-800MG
     Route: 048
     Dates: start: 20020801, end: 20060101
  4. SEROQUEL [Suspect]
     Indication: AFFECTIVE DISORDER
     Dosage: 200-800MG
     Route: 048
     Dates: start: 20020801, end: 20060101
  5. SEROQUEL [Suspect]
     Dosage: 25-200MG
     Route: 048
     Dates: start: 20020801
  6. SEROQUEL [Suspect]
     Dosage: 25-200MG
     Route: 048
     Dates: start: 20020801
  7. SEROQUEL [Suspect]
     Dosage: 25-200MG
     Route: 048
     Dates: start: 20020801
  8. SEROQUEL [Suspect]
     Dosage: 25-200MG
     Route: 048
     Dates: start: 20020801
  9. ZOLOFT [Concomitant]
     Dosage: 50 MG TO 150 MG
     Route: 048
     Dates: start: 20020601
  10. REMERON [Concomitant]
     Dosage: 7.5 MG TO 15 MG
     Route: 048
     Dates: start: 20020701
  11. AZMACORT [Concomitant]
     Dosage: 2 PUFFS, FOUR TIMES A DAY
     Route: 065
  12. COMBIVENT [Concomitant]
     Dosage: 2 PUFFS, FOUR TIMES A DAY
     Route: 065
  13. LORAZEPAM [Concomitant]
     Route: 048
  14. ABILIFY [Concomitant]
     Route: 048
  15. DYPHYLLINE GG [Concomitant]
     Route: 048
  16. PREDNISONE [Concomitant]
     Route: 048
  17. ALBUTEROL [Concomitant]
     Route: 065

REACTIONS (3)
  - DYSTHYMIC DISORDER [None]
  - SUICIDE ATTEMPT [None]
  - TYPE 2 DIABETES MELLITUS [None]
